FAERS Safety Report 4298414-6 (Version None)
Quarter: 2004Q1

REPORT INFORMATION
  Report Type: 
  Country: None (occurrence: None)
  Receive Date: 20040218
  Receipt Date: 20030527
  Transmission Date: 20041129
  Serious: Yes (Other)
  Sender: FDA-Public Use
  Company Number: US-BRISTOL-MYERS SQUIBB COMPANY-12287918

PATIENT
  Age: 31 Year
  Sex: Female

DRUGS (5)
  1. STADOL [Suspect]
     Route: 045
     Dates: start: 19970501
  2. ALPRAZOLAM [Concomitant]
  3. DEPAKOTE [Concomitant]
  4. HYDROCODONE + ACETAMINOPHEN [Concomitant]
  5. TEGRETOL [Concomitant]

REACTIONS (2)
  - DEPENDENCE [None]
  - DRUG ADDICT [None]
